FAERS Safety Report 8080628 (Version 2)
Quarter: 2014Q2

REPORT INFORMATION
  Report Type: Spontaneous
  Country: DE (occurrence: None)
  Receive Date: 20110728
  Receipt Date: 20140415
  Transmission Date: 20141212
  Serious: Yes (Other)
  Sender: FDA-Public Use
  Company Number: AUR-APL-2011-03944

PATIENT
  Age: 38 Year
  Sex: 0

DRUGS (1)
  1. TOPIRAMATE [Suspect]
     Indication: MIGRAINE
     Dosage: (25 MG, 1 D)

REACTIONS (9)
  - Idiosyncratic drug reaction [None]
  - Choroidal effusion [None]
  - Myopia [None]
  - Anxiety [None]
  - Lens dislocation [None]
  - Iris convex [None]
  - Flat anterior chamber of eye [None]
  - Choroidal detachment [None]
  - Ciliary body disorder [None]
